FAERS Safety Report 6994776-7 (Version None)
Quarter: 2010Q3

REPORT INFORMATION
  Report Type: 
  Country: None (occurrence: None)
  Receive Date: 20100917
  Receipt Date: 20090813
  Transmission Date: 20110219
  Serious: Yes (Other)
  Sender: FDA-Public Use
  Company Number: HQWYE026614APR05

PATIENT
  Sex: Female
  Weight: 56.75 kg

DRUGS (10)
  1. PREMPRO [Suspect]
     Indication: HORMONE REPLACEMENT THERAPY
     Dosage: UNSPECIFIED
     Route: 048
  2. MEDROXYPROGESTERONE ACETATE [Suspect]
  3. MEDROXYPROGESTERONE ACETATE [Suspect]
  4. MEDROXYPROGESTERONE [Suspect]
  5. TRIAMTERENE [Concomitant]
  6. LEVOXYL [Concomitant]
  7. ESTRADERM [Suspect]
  8. ESTRADIOL [Suspect]
  9. PREMARIN [Suspect]
  10. METOPROLOL [Concomitant]

REACTIONS (1)
  - BREAST CANCER [None]
